FAERS Safety Report 6330509-5 (Version None)
Quarter: 2009Q3

REPORT INFORMATION
  Report Type: 
  Country: None (occurrence: None)
  Receive Date: 20090827
  Receipt Date: 20090129
  Transmission Date: 20100115
  Serious: Yes (Hospitalization)
  Sender: FDA-Public Use
  Company Number: CA-ASTRAZENECA-2009UW02948

PATIENT
  Age: 13303 Day
  Sex: Male

DRUGS (6)
  1. SEROQUEL XR [Suspect]
     Dosage: 300MG
     Route: 048
     Dates: start: 20080820, end: 20081217
  2. SEROQUEL XR [Suspect]
     Dosage: 600MG
     Route: 048
     Dates: start: 20080821
  3. SEROQUEL XR [Suspect]
     Dosage: 800MG
     Route: 048
     Dates: start: 20080822
  4. DIVALPROEX SODIUM [Concomitant]
     Indication: PSYCHOTIC BEHAVIOUR
     Route: 048
  5. LORAZEPAM [Concomitant]
     Indication: ANXIETY
     Route: 048
     Dates: start: 20080904
  6. SYNTHROID [Concomitant]
     Indication: HYPOTHYROIDISM
     Route: 048
     Dates: start: 20080905

REACTIONS (1)
  - PSYCHOTIC BEHAVIOUR [None]
